FAERS Safety Report 8233382-3 (Version None)
Quarter: 2012Q1

REPORT INFORMATION
  Report Type: 
  Country: None (occurrence: None)
  Receive Date: 20120323
  Receipt Date: 20120323
  Transmission Date: 20120608
  Serious: No
  Sender: FDA-Public Use
  Company Number: None

PATIENT

DRUGS (2)
  1. PAROXETINE HCL [Suspect]
  2. PANTOPRAZOLE SODIUM [Suspect]
     Dosage: TABLET, DELAYED RELEASE (ENTERIC COATED)

REACTIONS (6)
  - HYPERHIDROSIS [None]
  - WRONG DRUG ADMINISTERED [None]
  - MALAISE [None]
  - DRUG DISPENSING ERROR [None]
  - LETHARGY [None]
  - MEDICATION ERROR [None]
